FAERS Safety Report 6330525-3 (Version None)
Quarter: 2009Q3

REPORT INFORMATION
  Report Type: 
  Country: None (occurrence: None)
  Receive Date: 20090827
  Receipt Date: 20080811
  Transmission Date: 20100115
  Serious: No
  Sender: FDA-Public Use
  Company Number: A0743169A

PATIENT
  Sex: Male

DRUGS (1)
  1. ZOVIRAX [Suspect]
     Indication: DRUG USE FOR UNKNOWN INDICATION
     Dosage: 1APP UNKNOWN
     Route: 061

REACTIONS (1)
  - ASTHENOPIA [None]
